FAERS Safety Report 8589446-8 (Version None)
Quarter: 2012Q3

REPORT INFORMATION
  Report Type: 
  Country: None (occurrence: None)
  Receive Date: 20120731
  Receipt Date: 20120720
  Transmission Date: 20120928
  Serious: Yes (Other)
  Sender: FDA-Public Use
  Company Number: ACO_31266_2012

PATIENT
  Age: 51 Year
  Sex: Female
  Weight: 81.6 kg

DRUGS (18)
  1. CRANBERRY /01512301/ (VACCINIUM MACROCARPON) [Concomitant]
  2. VITAMIN B (VITAMIN B COMPLEX) [Concomitant]
  3. CELLCEPT [Concomitant]
  4. MAGNESIUM (MAGNESIUM) [Concomitant]
  5. VITAMIN E /00110501/ (TOCOPHEROL) [Concomitant]
  6. VITAMIN C  /00008001/ (ASCORBIC ACID) [Concomitant]
  7. COQ10	/00517201/ (UBIDECARENONE) [Concomitant]
  8. OXYBUTYNIN [Concomitant]
  9. MYCOPHENOLATE MOFETIL [Concomitant]
  10. MULTIVITAMIN /00097801/ (ASCORBIC ACID, CALCIUM PANTOTHENATE, ERGOCALC [Concomitant]
  11. VITAMIN B-12 [Concomitant]
  12. AMPYRA [Suspect]
     Indication: MUSCULAR WEAKNESS
     Dosage: 10 MG, Q 12 HRS, ORAL, 10 MG, Q 12 HRS
     Route: 048
     Dates: start: 20110701
  13. AMPYRA [Suspect]
     Indication: PERONEAL NERVE PALSY
     Dosage: 10 MG, Q 12 HRS, ORAL, 10 MG, Q 12 HRS
     Route: 048
     Dates: start: 20110701
  14. AMPYRA [Suspect]
     Indication: MUSCULAR WEAKNESS
     Dosage: 10 MG, Q 12 HRS, ORAL, 10 MG, Q 12 HRS
     Route: 048
     Dates: start: 20101201
  15. AMPYRA [Suspect]
     Indication: PERONEAL NERVE PALSY
     Dosage: 10 MG, Q 12 HRS, ORAL, 10 MG, Q 12 HRS
     Route: 048
     Dates: start: 20101201
  16. AMPYRA [Suspect]
     Indication: MUSCULAR WEAKNESS
     Dosage: 10 MG, Q 12 HRS, ORAL, 10 MG, Q 12 HRS
     Route: 048
     Dates: start: 20120501
  17. AMPYRA [Suspect]
     Indication: PERONEAL NERVE PALSY
     Dosage: 10 MG, Q 12 HRS, ORAL, 10 MG, Q 12 HRS
     Route: 048
     Dates: start: 20120501
  18. GINKOBA (GINKGO BILOBA) [Concomitant]

REACTIONS (6)
  - GAIT DISTURBANCE [None]
  - LOSS OF CONSCIOUSNESS [None]
  - DRUG INEFFECTIVE [None]
  - VOMITING [None]
  - NAUSEA [None]
  - GASTROINTESTINAL INFECTION [None]
